FAERS Safety Report 6588715-0 (Version None)
Quarter: 2010Q1

REPORT INFORMATION
  Report Type: 
  Country: None (occurrence: None)
  Receive Date: 20100218
  Receipt Date: 20100216
  Transmission Date: 20100710
  Serious: Yes (Other)
  Sender: FDA-Public Use
  Company Number: A0844730A

PATIENT
  Age: 52 Year
  Sex: Male

DRUGS (1)
  1. SORIATANE [Suspect]
     Indication: PSORIASIS
     Dosage: 25MG UNKNOWN
     Route: 048
     Dates: start: 20091203

REACTIONS (3)
  - DRUG INEFFECTIVE [None]
  - LIP DRY [None]
  - PSORIASIS [None]
